FAERS Safety Report 4867786-3 (Version None)
Quarter: 2005Q4

REPORT INFORMATION
  Report Type: 
  Country: None (occurrence: None)
  Receive Date: 20051227
  Receipt Date: 20051227
  Transmission Date: 20060501
  Serious: Yes (Hospitalization)
  Sender: FDA-Public Use
  Company Number: None

PATIENT
  Sex: Female
  Weight: 59 kg

DRUGS (4)
  1. ARIXTRA [Suspect]
     Indication: PROPHYLAXIS
     Dosage: 2.5 MG Q DAY SUBCUT
     Route: 058
     Dates: start: 20051123, end: 20051127
  2. ARIXTRA [Suspect]
     Indication: PULMONARY EMBOLISM
     Dosage: 2.5 MG Q DAY SUBCUT
     Route: 058
     Dates: start: 20051123, end: 20051127
  3. ARIXTRA [Suspect]
     Indication: THROMBOSIS PROPHYLAXIS
     Dosage: 2.5 MG Q DAY SUBCUT
     Route: 058
     Dates: start: 20051123, end: 20051127
  4. WARFARIN [Concomitant]

REACTIONS (6)
  - HAEMATOCRIT DECREASED [None]
  - HAEMOGLOBIN DECREASED [None]
  - HAEMOPTYSIS [None]
  - LUNG NEOPLASM [None]
  - POST PROCEDURAL HAEMORRHAGE [None]
  - PROCEDURAL COMPLICATION [None]
